FAERS Safety Report 5704710-5 (Version None)
Quarter: 2008Q2

REPORT INFORMATION
  Report Type: 
  Country: None (occurrence: None)
  Receive Date: 20080410
  Receipt Date: 20080331
  Transmission Date: 20081010
  Serious: Yes (Hospitalization)
  Sender: FDA-Public Use
  Company Number: 2008BI008530

PATIENT
  Age: 61 Year
  Sex: Female
  Weight: 65.7716 kg

DRUGS (8)
  1. AVONEX [Suspect]
     Indication: MULTIPLE SCLEROSIS
     Dosage: 30 UG;QW; IM
     Route: 030
     Dates: start: 20030801, end: 20030801
  2. FOSAMAX [Concomitant]
  3. TIZANIDINE HCL [Concomitant]
  4. AMITRIPTYLINE HCL [Concomitant]
  5. SOMA [Concomitant]
  6. NAPROXIN [Concomitant]
  7. TRAMADOL HCL [Concomitant]
  8. LYRICA [Concomitant]

REACTIONS (3)
  - ASTHENIA [None]
  - OXYGEN SATURATION DECREASED [None]
  - PNEUMONIA [None]
